FAERS Safety Report 24206685 (Version 1)
Quarter: 2024Q3

REPORT INFORMATION
  Report Type: Spontaneous
  Country: ES (occurrence: ES)
  Receive Date: 20240813
  Receipt Date: 20240813
  Transmission Date: 20241017
  Serious: No
  Sender: JAZZ
  Company Number: None

PATIENT
  Age: 65 Year
  Sex: Female
  Weight: 63.3 kg

DRUGS (3)
  1. VYXEOS [Suspect]
     Active Substance: CYTARABINE\DAUNORUBICIN
     Indication: Acute myeloid leukaemia
     Dosage: MANAGEMENT IN CYCLES - START DATE CORRESPONDS TO DAY+1
     Route: 042
     Dates: start: 20230609
  2. LEVOFLOXACIN [Suspect]
     Active Substance: LEVOFLOXACIN
     Indication: Pyrexia
     Dosage: 500 MILLIGRAM, QD
     Route: 048
     Dates: start: 20230608, end: 20230610
  3. CEFTAZIDIME [Suspect]
     Active Substance: CEFTAZIDIME
     Indication: Pyrexia
     Dosage: 2 GRAM, TID
     Route: 042
     Dates: start: 20230608

REACTIONS (1)
  - Rash maculo-papular [Recovered/Resolved]

NARRATIVE: CASE EVENT DATE: 20230609
